FAERS Safety Report 18111653 (Version 2)
Quarter: 2020Q3

REPORT INFORMATION
  Report Type: Spontaneous
  Country: JP (occurrence: JP)
  Receive Date: 20200804
  Receipt Date: 20200820
  Transmission Date: 20201103
  Serious: Yes (Other)
  Sender: FDA-Public Use
  Company Number: JP-DSJP-DSJ-2020-121935AA

PATIENT
  Age: 9 Decade

DRUGS (1)
  1. LIXIANA OD TABLETS [Suspect]
     Active Substance: EDOXABAN TOSYLATE
     Indication: JOINT ARTHROPLASTY
     Dosage: UNK, QD
     Route: 048

REACTIONS (1)
  - Renal impairment [Recovered/Resolved]
